FAERS Safety Report 6659699-1 (Version None)
Quarter: 2010Q1

REPORT INFORMATION
  Report Type: 
  Country: None (occurrence: None)
  Receive Date: 20100324
  Receipt Date: 20100316
  Transmission Date: 20100710
  Serious: No
  Sender: FDA-Public Use
  Company Number: APP201000179

PATIENT
  Age: 49 Year
  Sex: Male

DRUGS (3)
  1. CISPLATIN [Suspect]
     Indication: SEMINOMA
     Dosage: THREE CYCLES IN FULL DOSES
  2. ETOPOSIDE [Concomitant]
  3. BLEOMYCIN SULFATE [Concomitant]

REACTIONS (1)
  - AORTIC THROMBOSIS [None]
